FAERS Safety Report 13599730 (Version 1)
Quarter: 2017Q2

REPORT INFORMATION
  Report Type: Spontaneous
  Country: US (occurrence: US)
  Receive Date: 20170601
  Receipt Date: 20170601
  Transmission Date: 20170830
  Serious: Yes (Other)
  Sender: FDA-Public Use
  Company Number: US-BAXTER-2017BAX021934

PATIENT
  Age: 69 Year
  Sex: Female

DRUGS (7)
  1. CYCLOPHOSPHAMIDE FOR INJECTION, USP [Suspect]
     Active Substance: CYCLOPHOSPHAMIDE
     Indication: BREAST CANCER STAGE II
     Route: 065
     Dates: start: 2013
  2. ARIMIDEX [Suspect]
     Active Substance: ANASTROZOLE
     Indication: BREAST CANCER STAGE II
     Route: 065
  3. IBRANCE [Suspect]
     Active Substance: PALBOCICLIB
     Indication: BREAST CANCER STAGE II
     Dosage: DAILY FOR 21 DAYS THEN, 7 DAYS OFF
     Route: 048
     Dates: start: 20160218
  4. IBRANCE [Suspect]
     Active Substance: PALBOCICLIB
     Dosage: DOSE REDUCED, DAILY FOR 21 DAYS THEN, 7 DAYS OFF
     Route: 048
  5. TAXOTERE [Suspect]
     Active Substance: DOCETAXEL
     Indication: BREAST CANCER STAGE II
     Route: 065
     Dates: start: 2013
  6. LETROZOLE. [Suspect]
     Active Substance: LETROZOLE
     Indication: BREAST CANCER STAGE II
     Route: 065
     Dates: start: 20160218
  7. IBRANCE [Suspect]
     Active Substance: PALBOCICLIB
     Dosage: DOSE REDUCED, DAILY FOR 21 DAYS THEN, 7 DAYS OFF
     Route: 048

REACTIONS (3)
  - Neutropenia [Recovered/Resolved]
  - Neutropenia [Recovered/Resolved]
  - Metastatic neoplasm [Unknown]

NARRATIVE: CASE EVENT DATE: 20160628
